FAERS Safety Report 21458195 (Version 2)
Quarter: 2022Q4

REPORT INFORMATION
  Report Type: Spontaneous
  Country: US (occurrence: US)
  Receive Date: 20221014
  Receipt Date: 20221026
  Transmission Date: 20230112
  Serious: Yes (Other)
  Sender: FDA-Public Use
  Company Number: US-drreddys-LIT/USA/22/0155766

PATIENT
  Age: 66 Year
  Sex: Male

DRUGS (6)
  1. DOXORUBICIN HYDROCHLORIDE [Suspect]
     Active Substance: DOXORUBICIN HYDROCHLORIDE
     Indication: Leiomyosarcoma
  2. DOXORUBICIN HYDROCHLORIDE [Suspect]
     Active Substance: DOXORUBICIN HYDROCHLORIDE
     Indication: Metastases to spleen
  3. TACROLIMUS [Suspect]
     Active Substance: TACROLIMUS
     Indication: Leiomyosarcoma
  4. TACROLIMUS [Suspect]
     Active Substance: TACROLIMUS
     Indication: Metastases to spleen
  5. SIROLIMUS [Suspect]
     Active Substance: SIROLIMUS
     Indication: Leiomyosarcoma
  6. SIROLIMUS [Suspect]
     Active Substance: SIROLIMUS
     Indication: Metastases to spleen

REACTIONS (2)
  - Leiomyosarcoma recurrent [Unknown]
  - Drug ineffective for unapproved indication [Unknown]
